FAERS Safety Report 9216089 (Version 1)
Quarter: 2013Q2

REPORT INFORMATION
  Report Type: Spontaneous
  Country: US (occurrence: US)
  Receive Date: 20130408
  Receipt Date: 20130408
  Transmission Date: 20140414
  Serious: Yes (Other)
  Sender: FDA-Public Use
  Company Number: US-JNJFOC-20130318584

PATIENT
  Sex: Female
  Weight: 47.63 kg

DRUGS (1)
  1. NEOSPORIN ECZEMA ESSENTIALS HYDROCORTISONE CREAM [Suspect]
     Indication: ECZEMA
     Dosage: HALF OF THE PACK
     Route: 061

REACTIONS (4)
  - Product contamination microbial [Unknown]
  - Eczema [Unknown]
  - Product formulation issue [Unknown]
  - Medication residue present [Unknown]
